FAERS Safety Report 5330135-0 (Version None)
Quarter: 2007Q2

REPORT INFORMATION
  Report Type: 
  Country: None (occurrence: None)
  Receive Date: 20070521
  Receipt Date: 20070511
  Transmission Date: 20071010
  Serious: Yes (Hospitalization)
  Sender: FDA-Public Use
  Company Number: US-KINGPHARMUSA00001-K200700581

PATIENT

DRUGS (5)
  1. ALTACE [Suspect]
     Indication: ESSENTIAL HYPERTENSION
     Dosage: 5 MG, QD
     Route: 048
     Dates: end: 20070323
  2. ALDALIX [Suspect]
     Indication: ESSENTIAL HYPERTENSION
     Dosage: 50 MG, UNK
     Route: 048
     Dates: end: 20070323
  3. SPIRIVA [Concomitant]
     Indication: BRONCHITIS CHRONIC
     Dosage: 18 UG, QD
     Dates: end: 20070323
  4. METFORMIN HCL [Concomitant]
     Indication: DIABETES MELLITUS
     Dosage: 2000 MG, UNK
     Route: 048
     Dates: end: 20070323
  5. ATARAX  /00058401/ [Concomitant]
     Route: 048
     Dates: end: 20070323

REACTIONS (5)
  - BLOOD CREATININE INCREASED [None]
  - HYPERKALAEMIA [None]
  - HYPONATRAEMIA [None]
  - RENAL FAILURE ACUTE [None]
  - VASCULAR CALCIFICATION [None]
